FAERS Safety Report 6531557-2 (Version None)
Quarter: 2009Q4

REPORT INFORMATION
  Report Type: 
  Country: None (occurrence: None)
  Receive Date: 20091222
  Receipt Date: 20091016
  Transmission Date: 20100525
  Serious: No
  Sender: FDA-Public Use
  Company Number: ALL1-2009-03277

PATIENT
  Age: 7 Year
  Sex: Male
  Weight: 21.8 kg

DRUGS (7)
  1. VYVANSE [Suspect]
     Indication: ATTENTION DEFICIT/HYPERACTIVITY DISORDER
     Dosage: SEE IMAGE
     Route: 048
     Dates: end: 20080101
  2. RISPERDAL [Suspect]
     Indication: AGGRESSION
     Dosage: 0.5 MG, 3X/DAY:TID, ORAL
     Route: 048
     Dates: end: 20090801
  3. SEROQUEL [Suspect]
     Indication: DRUG USE FOR UNKNOWN INDICATION
     Dosage: 25 MG, 2X/DAY:BID, ORAL ; 100 MG, 2X/DAY:BID, ORAL
     Route: 048
     Dates: start: 20080101
  4. ABILIFY [Suspect]
     Indication: AGGRESSION
     Dosage: 1X/DAY:QD, ORAL
     Route: 048
     Dates: start: 20090801
  5. RITALIN [Concomitant]
  6. STRATTERA [Concomitant]
  7. CELEXA [Concomitant]

REACTIONS (12)
  - AGGRESSION [None]
  - ANGER [None]
  - APHASIA [None]
  - BLOOD GLUCOSE DECREASED [None]
  - FLUSHING [None]
  - HALLUCINATION [None]
  - HYPOPHAGIA [None]
  - OVERDOSE [None]
  - PARANOIA [None]
  - SOCIAL AVOIDANT BEHAVIOUR [None]
  - TIC [None]
  - WRONG TECHNIQUE IN DRUG USAGE PROCESS [None]
